FAERS Safety Report 6647635-3 (Version None)
Quarter: 2010Q1

REPORT INFORMATION
  Report Type: 
  Country: None (occurrence: None)
  Receive Date: 20100323
  Receipt Date: 20100323
  Transmission Date: 20100710
  Serious: Yes (Other)
  Sender: FDA-Public Use
  Company Number: None

PATIENT
  Age: 9 Year
  Sex: Male
  Weight: 34.0198 kg

DRUGS (3)
  1. SINGULAIR [Suspect]
     Indication: RHINITIS ALLERGIC
     Dosage: 1 TAB BEDTIME BY MOUTH
     Route: 048
     Dates: start: 20100210, end: 20100310
  2. DIAMOX SRC [Concomitant]
  3. CABATROL [Concomitant]

REACTIONS (1)
  - PHOBIA [None]
